FAERS Safety Report 8532762-6 (Version None)
Quarter: 2012Q3

REPORT INFORMATION
  Report Type: 
  Country: None (occurrence: None)
  Receive Date: 20120724
  Receipt Date: 20120718
  Transmission Date: 20120928
  Serious: Yes (Hospitalization, Other)
  Sender: FDA-Public Use
  Company Number: PHHY2012MX062771

PATIENT
  Sex: Female

DRUGS (4)
  1. ANGIOTROFIN [Concomitant]
     Indication: HYPERTENSION
     Dosage: 120 MG/DAY
  2. ZOLEDRONOC ACID [Suspect]
     Dosage: 5 MG/100ML PER YEAR
     Route: 042
     Dates: start: 20111121
  3. ZOLEDRONOC ACID [Suspect]
     Indication: OSTEOPOROSIS
     Dosage: 5 MG/100ML PER YEAR
     Route: 042
     Dates: start: 20050101
  4. ENALAPRIL MALEATE [Concomitant]
     Indication: INSOMNIA
     Dosage: 2 MG/DAY

REACTIONS (3)
  - BREAST CYST [None]
  - BREAST CANCER [None]
  - BONE DECALCIFICATION [None]
